FAERS Safety Report 24257024 (Version 2)
Quarter: 2024Q3

REPORT INFORMATION
  Report Type: Report from Study
  Country: US (occurrence: US)
  Receive Date: 20240828
  Receipt Date: 20240918
  Transmission Date: 20241017
  Serious: Yes (Other)
  Sender: UCB
  Company Number: US-UCBSA-2024043523

PATIENT
  Sex: Female

DRUGS (10)
  1. BRIVARACETAM [Suspect]
     Active Substance: BRIVARACETAM
     Indication: Seizure
     Dosage: 50 MILLIGRAM, 2X/DAY (BID)
     Route: 048
     Dates: start: 20240828
  2. BRIVARACETAM [Suspect]
     Active Substance: BRIVARACETAM
     Indication: Epilepsy
  3. BUSPIRONE [Concomitant]
     Active Substance: BUSPIRONE HYDROCHLORIDE
     Indication: Anxiety
     Dosage: 5 MILLIGRAM, 1 TABLET BY MOUTH 2 (TWO) TIMES DAILY AND 2 TABLETS NIGHTLY.
     Route: 048
     Dates: start: 20240827
  4. VITAMIN D2 [Concomitant]
     Active Substance: ERGOCALCIFEROL
     Indication: Vitamin D decreased
     Dosage: 1250 MICROGRAM, 50000 UNITS TAKE 1 CAPSULE BY MOUTH EVERY 7 DAYS FOR 12. DOSES
     Route: 048
     Dates: start: 20240828
  5. LEXAPRO [Concomitant]
     Active Substance: ESCITALOPRAM OXALATE
     Indication: Major depression
     Dosage: 10 MILLIGRAM, TAKE 1 TABLET BY MOUTH DAILY
     Route: 048
     Dates: start: 20240715
  6. LEXAPRO [Concomitant]
     Active Substance: ESCITALOPRAM OXALATE
     Indication: Anxiety
  7. FERROUS SULFATE [Concomitant]
     Active Substance: FERROUS SULFATE
     Indication: Full blood count abnormal
     Dosage: 325 MILLIGRAM, 1 TABLET BY MOUTH DAILY WITH BREAKFAST
     Route: 048
     Dates: start: 20240828
  8. FERROUS SULFATE [Concomitant]
     Active Substance: FERROUS SULFATE
     Indication: Iron deficiency anaemia
  9. ZESTORETIC [Concomitant]
     Active Substance: HYDROCHLOROTHIAZIDE\LISINOPRIL
     Indication: Essential hypertension
     Dosage: 10-12.5 MG,TAKE 1 TABLET BY MOUTH DAILY
     Route: 048
     Dates: start: 20240823, end: 2024
  10. DESYREL [Concomitant]
     Active Substance: TRAZODONE HYDROCHLORIDE
     Indication: Insomnia
     Dosage: 50 MILLIGRAM, 1 TABLET BY MOUTH NIGHTLY
     Route: 048
     Dates: start: 20240715

REACTIONS (5)
  - Seizure [Unknown]
  - Vitamin D deficiency [Unknown]
  - Iron deficiency anaemia [Unknown]
  - Therapy interrupted [Unknown]
  - Inability to afford medication [Unknown]

NARRATIVE: CASE EVENT DATE: 20240101
